FAERS Safety Report 23386315 (Version 2)
Quarter: 2024Q1

REPORT INFORMATION
  Report Type: Report from Study
  Country: US (occurrence: US)
  Receive Date: 20240110
  Receipt Date: 20240220
  Transmission Date: 20240410
  Serious: No
  Sender: FDA-Public Use
  Company Number: US-002147023-NVSC2024US001481

PATIENT
  Sex: Female

DRUGS (1)
  1. KESIMPTA [Suspect]
     Active Substance: OFATUMUMAB
     Indication: Multiple sclerosis
     Dosage: 20 MG, ONCE A WEEK FOR 3 WEEKS, THEN QMO FROM 5TH WEEK
     Route: 058
     Dates: start: 20231221

REACTIONS (6)
  - Nasal congestion [Unknown]
  - Back pain [Unknown]
  - Headache [Recovered/Resolved]
  - Injection site pain [Recovered/Resolved]
  - Somnolence [Unknown]
  - Injection site haemorrhage [Unknown]
